FAERS Safety Report 6191047-6 (Version None)
Quarter: 2009Q2

REPORT INFORMATION
  Report Type: 
  Country: None (occurrence: None)
  Receive Date: 20090513
  Receipt Date: 20090507
  Transmission Date: 20091009
  Serious: Yes (Hospitalization)
  Sender: FDA-Public Use
  Company Number: 2009SP009772

PATIENT
  Age: 54 Year
  Sex: Female

DRUGS (2)
  1. PEG-INTRON [Suspect]
     Indication: HEPATITIS C
     Dates: start: 20090205
  2. REBETOL [Suspect]
     Indication: HEPATITIS C
     Dates: start: 20090205

REACTIONS (5)
  - FALL [None]
  - GASTRIC HAEMORRHAGE [None]
  - HEAD INJURY [None]
  - LOSS OF CONSCIOUSNESS [None]
  - PLATELET COUNT DECREASED [None]
